FAERS Safety Report 9868171 (Version 2)
Quarter: 2014Q1

REPORT INFORMATION
  Report Type: Spontaneous
  Country: US (occurrence: US)
  Receive Date: 20140204
  Receipt Date: 20140205
  Transmission Date: 20141002
  Serious: Yes (Hospitalization, Other)
  Sender: FDA-Public Use
  Company Number: US-ACORDA-ACO_101449_2014

PATIENT
  Age: 59 Year
  Sex: Female
  Weight: 56.69 kg

DRUGS (7)
  1. AMPYRA [Suspect]
     Indication: GAIT DISTURBANCE
     Dosage: 10 MG, BID
     Route: 048
     Dates: start: 20130424, end: 20131217
  2. LEXAPRO [Concomitant]
     Indication: DEPRESSION
     Dosage: UNK
     Route: 065
  3. CELLCEPT [Concomitant]
     Indication: PRODUCT USED FOR UNKNOWN INDICATION
     Dosage: UNK
     Route: 065
  4. VITAMIN D [Concomitant]
     Indication: PRODUCT USED FOR UNKNOWN INDICATION
     Dosage: UNK
     Route: 065
  5. AMANTADINE [Concomitant]
     Indication: PRODUCT USED FOR UNKNOWN INDICATION
     Dosage: UNK
     Route: 065
  6. L-CARNITINE [Concomitant]
     Indication: PRODUCT USED FOR UNKNOWN INDICATION
     Dosage: UNK
     Route: 065
  7. WELLBUTRIN XL [Concomitant]
     Indication: PRODUCT USED FOR UNKNOWN INDICATION
     Dosage: UNK
     Dates: start: 201305, end: 20140121

REACTIONS (9)
  - Convulsion [Recovered/Resolved]
  - Delirium [Unknown]
  - Hallucination [Unknown]
  - Restlessness [Unknown]
  - Fall [Unknown]
  - Sinusitis [Recovered/Resolved]
  - Vomiting [Unknown]
  - Nausea [Unknown]
  - Insomnia [Unknown]
